FAERS Safety Report 5256947-X (Version None)
Quarter: 2007Q1

REPORT INFORMATION
  Report Type: 
  Country: None (occurrence: None)
  Receive Date: 20070307
  Receipt Date: 20070301
  Transmission Date: 20070707
  Serious: Yes (Hospitalization)
  Sender: FDA-Public Use
  Company Number: FRWYE836401MAR07

PATIENT
  Age: 37 Year
  Sex: Female

DRUGS (1)
  1. EFFEXOR XR [Suspect]
     Route: 048
     Dates: start: 20060701, end: 20060701

REACTIONS (4)
  - ABDOMINAL PAIN [None]
  - ANGIOEDEMA [None]
  - ARTHRALGIA [None]
  - URTICARIA CHRONIC [None]
